FAERS Safety Report 5154272-9 (Version None)
Quarter: 2006Q4

REPORT INFORMATION
  Report Type: 
  Country: None (occurrence: None)
  Receive Date: 20061114
  Receipt Date: 20061103
  Transmission Date: 20070319
  Serious: Yes (Other)
  Sender: FDA-Public Use
  Company Number: GXKR2006NZ07053

PATIENT
  Age: 74 Year
  Sex: Male

DRUGS (3)
  1. OMEPRAZOLE [Suspect]
  2. IBUPROFEN [Concomitant]
  3. AMOXICILLIN TRIHYDRATE/CLAVULANATE POTASSIUM (AMOXICILLIN, CLAVULANATE [Concomitant]

REACTIONS (4)
  - HYPERSENSITIVITY [None]
  - NEPHRITIS INTERSTITIAL [None]
  - POLYURIA [None]
  - RENAL FAILURE ACUTE [None]
